FAERS Safety Report 19898329 (Version 1)
Quarter: 2021Q3

REPORT INFORMATION
  Report Type: Spontaneous
  Country: IN (occurrence: IN)
  Receive Date: 20210930
  Receipt Date: 20210930
  Transmission Date: 20211014
  Serious: Yes (Other)
  Sender: FDA-Public Use
  Company Number: IN-UNICHEM PHARMACEUTICALS (USA) INC-UCM202109-000890

PATIENT
  Age: 37 Year
  Sex: Male

DRUGS (1)
  1. METRONIDAZOLE. [Suspect]
     Active Substance: METRONIDAZOLE
     Indication: LIVER ABSCESS

REACTIONS (6)
  - Dysarthria [Recovered/Resolved]
  - Dysdiadochokinesis [Recovered/Resolved]
  - Dysmetria [Recovered/Resolved]
  - Gait disturbance [Recovered/Resolved]
  - Cerebellar syndrome [Recovered/Resolved]
  - Nystagmus [Recovered/Resolved]
